FAERS Safety Report 8860299 (Version 2)
Quarter: 2012Q4

REPORT INFORMATION
  Report Type: 
  Country: US (occurrence: US)
  Receive Date: 20121025
  Receipt Date: 20121218
  Transmission Date: 20130627
  Serious: Yes (Other)
  Sender: FDA-Public Use
  Company Number: US-PFIZER INC-2012263581

PATIENT
  Age: 86 Year
  Sex: Male

DRUGS (3)
  1. INLYTA [Suspect]
     Indication: MALIGNANT NEOPLASM OF KIDNEY, EXCEPT PELVIS
     Dosage: 5 mg, 2x/day
     Route: 048
     Dates: start: 20120612, end: 20121015
  2. COREG [Concomitant]
     Dosage: UNK
  3. ATORVASTATIN [Concomitant]
     Dosage: UNK

REACTIONS (1)
  - Cerebrovascular accident [Recovered/Resolved with Sequelae]
